FAERS Safety Report 13176519 (Version 4)
Quarter: 2017Q3

REPORT INFORMATION
  Report Type: Spontaneous
  Country: JP (occurrence: JP)
  Receive Date: 20170201
  Receipt Date: 20170809
  Transmission Date: 20171127
  Serious: Yes (Death, Other)
  Sender: FDA-Public Use
  Company Number: JP-009507513-1701JPN013597

PATIENT
  Age: 28 Year
  Sex: Female

DRUGS (22)
  1. BETAHISTINE MESYLATE [Concomitant]
     Active Substance: BETAHISTINE MESILATE
     Dosage: 36 MG, DAILY DOSE
     Route: 048
     Dates: start: 20161115, end: 20161115
  2. ISOSORBIDE. [Concomitant]
     Active Substance: ISOSORBIDE
     Dosage: 90 ML, DAILY DOSE
     Route: 048
     Dates: start: 20161115, end: 20161115
  3. POLYCARBOPHIL [Concomitant]
     Active Substance: POLYCARBOPHIL
     Indication: PRODUCT USED FOR UNKNOWN INDICATION
     Dosage: 1500 MG, DAILY DOSE
     Route: 048
     Dates: start: 20161112, end: 20161113
  4. RABEPRAZOLE SODIUM. [Concomitant]
     Active Substance: RABEPRAZOLE SODIUM
     Indication: PRODUCT USED FOR UNKNOWN INDICATION
     Dosage: 20 MG, DAILY DOSE
     Route: 048
     Dates: start: 20160213, end: 20161113
  5. MECOBALAMIN [Concomitant]
     Active Substance: METHYLCOBALAMIN
     Indication: DIZZINESS
     Dosage: 1000 MICROGRAM, DAILY DOSE
     Route: 065
     Dates: start: 20161111, end: 20161113
  6. ISOSORBIDE. [Concomitant]
     Active Substance: ISOSORBIDE
     Indication: DIZZINESS
     Dosage: 90 ML, DAILY DOSE
     Route: 048
     Dates: start: 20161111, end: 20161113
  7. ESZOPICLONE. [Concomitant]
     Active Substance: ESZOPICLONE
     Dosage: 3 MG, DAILY DOSE
     Route: 048
     Dates: start: 20161115, end: 20161117
  8. ADENOSINE TRIPHOSPHATE DISODIUM [Concomitant]
     Active Substance: ADENOSINE TRIPHOSPHATE DISODIUM
     Dosage: 2 G, DAILY DOSE
     Route: 048
     Dates: start: 20161115, end: 20161115
  9. PRIMPERAN [Suspect]
     Active Substance: METOCLOPRAMIDE HYDROCHLORIDE
     Indication: PRODUCT USED FOR UNKNOWN INDICATION
     Dosage: 15 MG, DAILY DOSE
     Route: 048
     Dates: start: 20160213, end: 20161113
  10. BETAHISTINE MESYLATE [Concomitant]
     Active Substance: BETAHISTINE MESILATE
     Indication: DIZZINESS
     Dosage: 36 MG, DAILY DOSE
     Route: 048
     Dates: start: 20161111, end: 20161113
  11. PRIMPERAN [Suspect]
     Active Substance: METOCLOPRAMIDE HYDROCHLORIDE
     Dosage: 15 MG, DAILY DOSE
     Route: 048
     Dates: start: 20161115, end: 20161117
  12. TRAZODONE HYDROCHLORIDE. [Suspect]
     Active Substance: TRAZODONE HYDROCHLORIDE
     Indication: DEPRESSION
     Dosage: 100 MG, DAILY DOSE
     Route: 048
     Dates: start: 20160213, end: 20161113
  13. DIAZEPAM. [Concomitant]
     Active Substance: DIAZEPAM
     Dosage: 5 MG, DAILY DOSE
     Route: 048
     Dates: start: 20161115, end: 20161117
  14. MECOBALAMIN [Concomitant]
     Active Substance: METHYLCOBALAMIN
     Dosage: 1000 MICROGRAM, DAILY DOSE
     Route: 065
     Dates: start: 20161115, end: 20161115
  15. REFLEX [Suspect]
     Active Substance: MIRTAZAPINE
     Indication: DEPRESSION
     Dosage: 15 MG, ONCE DAILY
     Route: 048
     Dates: start: 20161112, end: 20161113
  16. TRAZODONE HYDROCHLORIDE. [Suspect]
     Active Substance: TRAZODONE HYDROCHLORIDE
     Dosage: 100 MG, DAILY DOSE
     Route: 048
     Dates: start: 20161115, end: 20161117
  17. ALPRAZOLAM. [Concomitant]
     Active Substance: ALPRAZOLAM
     Indication: DEPRESSION
     Dosage: 0.4 MG, DAILY DOSE
     Route: 048
     Dates: start: 20160213, end: 20161113
  18. DIAZEPAM. [Concomitant]
     Active Substance: DIAZEPAM
     Indication: DEPRESSION
     Dosage: 5 MG, DAILY DOSE
     Route: 048
     Dates: start: 20160213, end: 20161113
  19. ESZOPICLONE. [Concomitant]
     Active Substance: ESZOPICLONE
     Indication: INSOMNIA
     Dosage: 3 MG, DAILY DOSE
     Route: 048
     Dates: start: 20160213, end: 20161113
  20. RABEPRAZOLE SODIUM. [Concomitant]
     Active Substance: RABEPRAZOLE SODIUM
     Dosage: 20 MG, DAILY DOSE
     Route: 048
     Dates: start: 20161115, end: 20161117
  21. ADENOSINE TRIPHOSPHATE DISODIUM [Concomitant]
     Active Substance: ADENOSINE TRIPHOSPHATE DISODIUM
     Indication: DIZZINESS
     Dosage: 2 G, DAILY DOSE
     Route: 048
     Dates: start: 20161111, end: 20161113
  22. POLYCARBOPHIL [Concomitant]
     Active Substance: POLYCARBOPHIL
     Dosage: 1500 MG, DAILY DOSE
     Route: 048
     Dates: start: 20161115, end: 20161115

REACTIONS (2)
  - Neuroleptic malignant syndrome [Fatal]
  - Hepatic function abnormal [Unknown]

NARRATIVE: CASE EVENT DATE: 20161115
